FAERS Safety Report 5668633-2 (Version None)
Quarter: 2008Q1

REPORT INFORMATION
  Report Type: 
  Country: None (occurrence: None)
  Receive Date: 20080312
  Receipt Date: 20080304
  Transmission Date: 20080703
  Serious: Yes (Other)
  Sender: FDA-Public Use
  Company Number: S08-USA-00435-01

PATIENT
  Age: 78 Year
  Sex: Female

DRUGS (3)
  1. THYROID TAB [Suspect]
     Indication: HYPOTHYROIDISM
     Dosage: 180 MG QD PO
     Route: 048
     Dates: start: 19680101, end: 20060101
  2. THYROID TAB [Suspect]
     Indication: HYPOTHYROIDISM
     Dosage: 120 MG QOD PO
     Route: 048
     Dates: start: 20060101
  3. THYROID TAB [Suspect]
     Indication: HYPOTHYROIDISM
     Dosage: 180 MG QOD PO
     Route: 048
     Dates: start: 20060101

REACTIONS (3)
  - HYPERTENSION [None]
  - HYPOTHYROIDISM [None]
  - RENAL CELL CARCINOMA STAGE I [None]
